FAERS Safety Report 13648827 (Version 1)
Quarter: 2017Q2

REPORT INFORMATION
  Report Type: Spontaneous
  Country: LT (occurrence: LT)
  Receive Date: 20170613
  Receipt Date: 20170613
  Transmission Date: 20170830
  Serious: Yes (Death, Other)
  Sender: FDA-Public Use
  Company Number: LT-TAKEDA-2017TUS012862

PATIENT

DRUGS (1)
  1. ENTYVIO [Suspect]
     Active Substance: VEDOLIZUMAB
     Indication: ACUTE GRAFT VERSUS HOST DISEASE
     Dosage: UNK
     Route: 065
     Dates: start: 201512, end: 201704

REACTIONS (3)
  - Infection [Fatal]
  - Off label use [Unknown]
  - Graft versus host disease [Fatal]

NARRATIVE: CASE EVENT DATE: 201512
